FAERS Safety Report 6657797-X (Version None)
Quarter: 2010Q1

REPORT INFORMATION
  Report Type: 
  Country: None (occurrence: None)
  Receive Date: 20100330
  Receipt Date: 20100317
  Transmission Date: 20100710
  Serious: Yes (Hospitalization)
  Sender: FDA-Public Use
  Company Number: BE-ELI_LILLY_AND_COMPANY-BE201002000107

PATIENT
  Sex: Male
  Weight: 82 kg

DRUGS (10)
  1. ZYPREXA [Suspect]
     Indication: SCHIZOPHRENIA
     Dosage: 5 MG, 3/D
     Route: 048
     Dates: start: 20091230, end: 20100126
  2. ZYPREXA [Suspect]
     Dosage: 10 MG, EACH EVENING
     Route: 048
     Dates: start: 20091230, end: 20100126
  3. TRANXENE [Concomitant]
     Dosage: UNK, 3/D
  4. ALDACTONE [Concomitant]
     Dosage: UNK, DAILY (1/D)
  5. ETUMINE [Concomitant]
     Dosage: 40 MG, UNK
  6. LIPANTHYL [Concomitant]
     Dosage: 1 D/F, DAILY (1/D)
  7. BISOPROLOL [Concomitant]
     Dosage: 5 MG, DAILY (1/D)
  8. PERSANTINE [Concomitant]
     Dosage: 1 D/F, DAILY (1/D)
  9. SEROQUEL [Concomitant]
     Dates: end: 20100126
  10. TEGRETOL [Concomitant]

REACTIONS (4)
  - ANGIOEDEMA [None]
  - LEUKOPENIA [None]
  - OVERDOSE [None]
  - PRURITUS [None]
